FAERS Safety Report 18277086 (Version 15)
Quarter: 2025Q2

REPORT INFORMATION
  Report Type: Report from Study
  Country: US (occurrence: US)
  Receive Date: 20200917
  Receipt Date: 20250618
  Transmission Date: 20250717
  Serious: Yes (Other)
  Sender: TAKEDA
  Company Number: US-SHIRE-US202030211

PATIENT
  Age: 36 Year
  Sex: Female
  Weight: 56 kg

DRUGS (24)
  1. HUMAN IMMUNOGLOBULIN G [Suspect]
     Active Substance: HUMAN IMMUNOGLOBULIN G
     Indication: IgG deficiency
     Dosage: 15 GRAM, Q2WEEKS
     Dates: start: 20200731
  2. HUMAN IMMUNOGLOBULIN G [Suspect]
     Active Substance: HUMAN IMMUNOGLOBULIN G
     Indication: Immune system disorder
  3. GAMMAGARD LIQUID [Suspect]
     Active Substance: HUMAN IMMUNOGLOBULIN G
     Indication: Immunodeficiency common variable
     Dosage: 22 GRAM, Q4WEEKS
     Dates: start: 20240429
  4. ACETAMINOPHEN [Concomitant]
     Active Substance: ACETAMINOPHEN
  5. EPINEPHRINE [Concomitant]
     Active Substance: EPINEPHRINE
  6. CORTEF [Concomitant]
     Active Substance: HYDROCORTISONE
  7. DICYCLOMINE HYDROCHLORIDE [Concomitant]
     Active Substance: DICYCLOMINE HYDROCHLORIDE
  8. VITAMIN D3 [Concomitant]
     Active Substance: CHOLECALCIFEROL
  9. LORAZEPAM [Concomitant]
     Active Substance: LORAZEPAM
  10. FLUDROCORTISONE ACETATE [Concomitant]
     Active Substance: FLUDROCORTISONE ACETATE
  11. DEXAMETHASONE [Concomitant]
     Active Substance: DEXAMETHASONE
  12. DIPHENHYDRAMINE HYDROCHLORIDE [Concomitant]
     Active Substance: DIPHENHYDRAMINE HYDROCHLORIDE
  13. Lmx [Concomitant]
  14. CABERGOLINE [Concomitant]
     Active Substance: CABERGOLINE
  15. ESTRADIOL [Concomitant]
     Active Substance: ESTRADIOL
     Dosage: UNK, 1/WEEK
  16. DICYCLOMINE [Concomitant]
     Active Substance: DICYCLOMINE HYDROCHLORIDE
  17. ACETAMINOPHEN\HYDROCODONE [Concomitant]
     Active Substance: ACETAMINOPHEN\HYDROCODONE
  18. SODIUM CHLORIDE [Concomitant]
     Active Substance: SODIUM CHLORIDE
  19. METHYLPREDNISOLONE [Concomitant]
     Active Substance: METHYLPREDNISOLONE
  20. LIDOCAINE [Concomitant]
     Active Substance: LIDOCAINE
  21. BYSTOLIC [Concomitant]
     Active Substance: NEBIVOLOL HYDROCHLORIDE
     Indication: Product used for unknown indication
  22. PANTOPRAZOLE SODIUM [Concomitant]
     Active Substance: PANTOPRAZOLE SODIUM
     Indication: Product used for unknown indication
  23. FENOFIBRATE [Concomitant]
     Active Substance: FENOFIBRATE
     Indication: Product used for unknown indication
  24. SODIUM CHLORIDE [Concomitant]
     Active Substance: SODIUM CHLORIDE
     Indication: Product used for unknown indication

REACTIONS (19)
  - Adrenocortical insufficiency acute [Unknown]
  - Viral infection [Not Recovered/Not Resolved]
  - Dehydration [Unknown]
  - Gastrointestinal infection [Unknown]
  - Dermatitis contact [Unknown]
  - Escherichia urinary tract infection [Unknown]
  - Infusion site discharge [Unknown]
  - Incorrect product administration duration [Unknown]
  - Product dose omission issue [Unknown]
  - Inappropriate schedule of product administration [Unknown]
  - Hidradenitis [Unknown]
  - Injection site mass [Unknown]
  - Infusion site haemorrhage [Unknown]
  - Infusion site mass [Unknown]
  - Rash [Unknown]
  - Infusion site swelling [Unknown]
  - Infusion site pruritus [Unknown]
  - Infusion site pain [Unknown]
  - Urticaria [Unknown]

NARRATIVE: CASE EVENT DATE: 20201017
